FAERS Safety Report 21708170 (Version 1)
Quarter: 2022Q4

REPORT INFORMATION
  Report Type: Spontaneous
  Country: DE (occurrence: DE)
  Receive Date: 20221209
  Receipt Date: 20221209
  Transmission Date: 20230113
  Serious: Yes (Other)
  Sender: FDA-Public Use
  Company Number: DE-BRISTOL-MYERS SQUIBB COMPANY-2022-143890

PATIENT
  Age: 58 Year
  Sex: Female
  Weight: 55 kg

DRUGS (10)
  1. CARBOPLATIN [Suspect]
     Active Substance: CARBOPLATIN
     Indication: Non-small cell lung cancer
     Dosage: AUC5
     Route: 065
     Dates: start: 20220322
  2. CARBOPLATIN [Suspect]
     Active Substance: CARBOPLATIN
     Dosage: AUC5
     Route: 065
     Dates: start: 202204
  3. PACLITAXEL [Suspect]
     Active Substance: PACLITAXEL
     Indication: Non-small cell lung cancer
     Dosage: 175 MG/M2
     Route: 065
     Dates: start: 20220322
  4. PACLITAXEL [Suspect]
     Active Substance: PACLITAXEL
     Dosage: 175 MG/M2
     Route: 065
     Dates: start: 202204
  5. IPILIMUMAB [Suspect]
     Active Substance: IPILIMUMAB
     Indication: Non-small cell lung cancer
     Dosage: 1 MG/KG
     Route: 065
     Dates: start: 20220322
  6. IPILIMUMAB [Suspect]
     Active Substance: IPILIMUMAB
     Dosage: WEEK 6; 1 MG/KG
     Route: 065
     Dates: start: 202205
  7. NIVOLUMAB [Suspect]
     Active Substance: NIVOLUMAB
     Indication: Non-small cell lung cancer
     Dosage: 360 MG ABS
     Route: 042
     Dates: start: 20220322
  8. NIVOLUMAB [Suspect]
     Active Substance: NIVOLUMAB
     Dosage: 360 MG ABS
     Route: 042
     Dates: start: 20220412
  9. NIVOLUMAB [Suspect]
     Active Substance: NIVOLUMAB
     Dosage: 360 MG ABS
     Route: 042
     Dates: start: 20220524
  10. NIVOLUMAB [Suspect]
     Active Substance: NIVOLUMAB
     Dosage: 360 MG ABS
     Route: 042
     Dates: start: 202205

REACTIONS (1)
  - Normochromic anaemia [Unknown]

NARRATIVE: CASE EVENT DATE: 20220101
